FAERS Safety Report 11099776 (Version 1)
Quarter: 2015Q2

REPORT INFORMATION
  Report Type: Report from Study
  Country: DE (occurrence: DE)
  Receive Date: 20150508
  Receipt Date: 20150508
  Transmission Date: 20150821
  Serious: Yes (Other)
  Sender: FDA-Public Use
  Company Number: DE-SA-2014SA002235

PATIENT
  Age: 57 Year
  Sex: Female

DRUGS (4)
  1. AUBAGIO [Suspect]
     Active Substance: TERIFLUNOMIDE
     Indication: MULTIPLE SCLEROSIS
     Route: 048
     Dates: start: 20131210
  2. CORTISONE [Concomitant]
     Active Substance: CORTISONE\HYDROCORTISONE
     Dates: start: 201311
  3. AUBAGIO [Suspect]
     Active Substance: TERIFLUNOMIDE
     Indication: MULTIPLE SCLEROSIS
     Route: 048
     Dates: start: 20131210
  4. METFORMIN [Concomitant]
     Active Substance: METFORMIN HYDROCHLORIDE
     Indication: DIABETES MELLITUS
     Dosage: TREATMENT START DATE: NOV-/DEC 2013
     Route: 048
     Dates: start: 2013

REACTIONS (10)
  - Flatulence [Not Recovered/Not Resolved]
  - Eructation [Unknown]
  - Pyrexia [Unknown]
  - Eructation [Not Recovered/Not Resolved]
  - Immunodeficiency [Unknown]
  - Abdominal discomfort [Not Recovered/Not Resolved]
  - Influenza [Unknown]
  - Alopecia [Recovering/Resolving]
  - Drug dose omission [Unknown]
  - Sinusitis [Unknown]

NARRATIVE: CASE EVENT DATE: 20131210
